FAERS Safety Report 24701166 (Version 1)
Quarter: 2024Q4

REPORT INFORMATION
  Report Type: Spontaneous
  Country: US (occurrence: None)
  Receive Date: 20241205
  Receipt Date: 20241205
  Transmission Date: 20250115
  Serious: Yes (Hospitalization)
  Sender: Public
  Company Number: None

PATIENT
  Age: 61 Year
  Sex: Female
  Weight: 115.7 kg

DRUGS (4)
  1. FLUOROURACIL [Suspect]
     Active Substance: FLUOROURACIL
     Dates: end: 20241124
  2. CAMPTOSAR [Suspect]
     Active Substance: IRINOTECAN HYDROCHLORIDE
     Dates: end: 20241122
  3. LEUCOVORIN CALCIUM [Suspect]
     Active Substance: LEUCOVORIN CALCIUM
     Dates: end: 20241122
  4. ELOXATIN [Suspect]
     Active Substance: OXALIPLATIN
     Dates: end: 20241122

REACTIONS (10)
  - Nausea [None]
  - Diarrhoea [None]
  - Abdominal discomfort [None]
  - Abdominal distension [None]
  - Vomiting [None]
  - Dehydration [None]
  - Blood lactic acid abnormal [None]
  - Blood creatinine abnormal [None]
  - Intestinal dilatation [None]
  - Ileus [None]

NARRATIVE: CASE EVENT DATE: 20241130
